FAERS Safety Report 4754050-6 (Version None)
Quarter: 2005Q3

REPORT INFORMATION
  Report Type: 
  Country: None (occurrence: None)
  Receive Date: 20050826
  Receipt Date: 20050812
  Transmission Date: 20060218
  Serious: Yes (Hospitalization)
  Sender: FDA-Public Use
  Company Number: 2005-BP-13917RO

PATIENT
  Age: 75 Year
  Sex: Male
  Weight: 90 kg

DRUGS (9)
  1. CITALOPRAM (CITALOPRAM) [Suspect]
     Dosage: 40 MG DAILY
  2. LEVOFLOXACIN [Suspect]
     Indication: URINARY TRACT INFECTION
     Dosage: 500 MG DAILY, PO
  3. DONEPEZIL HCL [Suspect]
     Dosage: 10 MG DAILY
  4. ASPIRIN [Suspect]
     Dosage: 81 MG DAILY
  5. DONEPEZIL HCL [Concomitant]
  6. FOLATE (FOLATE SODIUM) [Concomitant]
  7. GABAPENTIN [Concomitant]
  8. DIVALPROEX SODIUM [Concomitant]
  9. RANITIDINE [Concomitant]

REACTIONS (8)
  - AMNESIA [None]
  - BLOOD CREATININE INCREASED [None]
  - BLOOD UREA INCREASED [None]
  - CONDITION AGGRAVATED [None]
  - CONVULSION [None]
  - DRUG INTERACTION [None]
  - PLATELET COUNT DECREASED [None]
  - URINARY TRACT INFECTION [None]
